FAERS Safety Report 16431988 (Version 1)
Quarter: 2019Q2

REPORT INFORMATION
  Report Type: Spontaneous
  Country: US (occurrence: US)
  Receive Date: 20190614
  Receipt Date: 20190614
  Transmission Date: 20190711
  Serious: No
  Sender: FDA-Public Use
  Company Number: US-JNJFOC-20151100770

PATIENT
  Sex: Male

DRUGS (2)
  1. RISPERDAL [Suspect]
     Active Substance: RISPERIDONE
     Indication: AUTISM SPECTRUM DISORDER
     Dosage: 0.5 - 1 MG
     Route: 065
     Dates: start: 200702, end: 200705
  2. RISPERDAL [Suspect]
     Active Substance: RISPERIDONE
     Indication: AUTISM SPECTRUM DISORDER
     Dosage: 0.5 - 1 MG
     Route: 065
     Dates: start: 200611, end: 200612

REACTIONS (6)
  - Blood prolactin increased [Unknown]
  - Abnormal weight gain [Unknown]
  - Increased appetite [Unknown]
  - Insomnia [Unknown]
  - Enuresis [Unknown]
  - Gynaecomastia [Unknown]

NARRATIVE: CASE EVENT DATE: 2006
